FAERS Safety Report 23180593 (Version 2)
Quarter: 2023Q4

REPORT INFORMATION
  Report Type: Spontaneous
  Country: DE (occurrence: DE)
  Receive Date: 20231114
  Receipt Date: 20231127
  Transmission Date: 20240110
  Serious: Yes (Hospitalization, Other)
  Sender: FDA-Public Use
  Company Number: DE-MSNLABS-2023MSNLIT00020

PATIENT
  Age: 46 Year
  Sex: Male

DRUGS (1)
  1. FINGOLIMOD [Suspect]
     Active Substance: FINGOLIMOD
     Indication: Relapsing-remitting multiple sclerosis

REACTIONS (4)
  - Monkeypox [Recovered/Resolved]
  - Urinary retention [Recovered/Resolved]
  - Haematuria [Recovered/Resolved]
  - Lymphopenia [Recovered/Resolved]
